FAERS Safety Report 13433671 (Version 1)
Quarter: 2017Q2

REPORT INFORMATION
  Report Type: Spontaneous
  Country: SE (occurrence: SE)
  Receive Date: 20170412
  Receipt Date: 20170412
  Transmission Date: 20170830
  Serious: Yes (Death)
  Sender: FDA-Public Use
  Company Number: SE-TEVA-757793ISR

PATIENT
  Age: 17 Year
  Sex: Male

DRUGS (3)
  1. OXALIPLATIN. [Suspect]
     Active Substance: OXALIPLATIN
  2. CAPECITABINE. [Concomitant]
     Active Substance: CAPECITABINE
  3. EPIRUBICIN [Suspect]
     Active Substance: EPIRUBICIN

REACTIONS (1)
  - Cardiac arrest [Fatal]
